FAERS Safety Report 6037787-0 (Version None)
Quarter: 2009Q1

REPORT INFORMATION
  Report Type: 
  Country: None (occurrence: None)
  Receive Date: 20090114
  Receipt Date: 20090105
  Transmission Date: 20090719
  Serious: Yes (Life-Threatening, Hospitalization)
  Sender: FDA-Public Use
  Company Number: 2009SP000309

PATIENT
  Age: 47 Year
  Sex: Female

DRUGS (8)
  1. BETAMETHASONE [Suspect]
     Indication: ACUTE SINUSITIS
     Dosage: 0.5 MG;QD;  ACUTE SINUSITIS, MAXILLARY
     Dates: start: 20081128
  2. BETAMETHASONE [Suspect]
     Indication: CYST
     Dosage: 0.5 MG;QD;  ACUTE SINUSITIS, MAXILLARY
     Dates: start: 20081128
  3. AVELOX [Suspect]
     Indication: ACUTE SINUSITIS
     Dosage: 400 MG;QD;
     Dates: start: 20081128
  4. AVELOX [Suspect]
     Indication: CYST
     Dosage: 400 MG;QD;
     Dates: start: 20081128
  5. PRIADEL (LITHIUM) (LITHIUM CARBONATE) [Suspect]
     Indication: DRUG USE FOR UNKNOWN INDICATION
     Dosage: 400 MG;TTD; 400 MG;BID
     Dates: start: 20080501
  6. PRIADEL (LITHIUM) (LITHIUM CARBONATE) [Suspect]
     Indication: DRUG USE FOR UNKNOWN INDICATION
     Dosage: 400 MG;TTD; 400 MG;BID
     Dates: start: 20081101
  7. METAMUCIL [Concomitant]
  8. LITHIUM [Concomitant]

REACTIONS (9)
  - ACUTE SINUSITIS [None]
  - ANTIPSYCHOTIC DRUG LEVEL INCREASED [None]
  - ANXIETY [None]
  - CYST [None]
  - ELECTROCARDIOGRAM QT PROLONGED [None]
  - FLUSHING [None]
  - HYPERHIDROSIS [None]
  - INFECTION [None]
  - POTENTIATING DRUG INTERACTION [None]
